FAERS Safety Report 13775757 (Version 1)
Quarter: 2017Q3

REPORT INFORMATION
  Report Type: Spontaneous
  Country: US (occurrence: US)
  Receive Date: 20170721
  Receipt Date: 20170721
  Transmission Date: 20171127
  Serious: Yes (Hospitalization)
  Sender: FDA-Public Use
  Company Number: None

PATIENT
  Age: 78 Year
  Sex: Female
  Weight: 49.9 kg

DRUGS (2)
  1. VICKS SINEX 12 HOUR DECONGESTANT [Suspect]
     Active Substance: OXYMETAZOLINE HYDROCHLORIDE
     Indication: NASAL CONGESTION
     Dosage: 2 SPRAYS EACH NOSTRIL  1 TIME MANUAL APPLICATION SPRAY
     Route: 045
     Dates: start: 20170709
  2. VICKS SINEX 12 HOUR DECONGESTANT [Suspect]
     Active Substance: OXYMETAZOLINE HYDROCHLORIDE
     Indication: RHINORRHOEA
     Dosage: 2 SPRAYS EACH NOSTRIL  1 TIME MANUAL APPLICATION SPRAY
     Route: 045
     Dates: start: 20170709

REACTIONS (4)
  - Heart rate irregular [None]
  - Asthenia [None]
  - Syncope [None]
  - Dizziness [None]

NARRATIVE: CASE EVENT DATE: 20170709
